FAERS Safety Report 8606751-7 (Version None)
Quarter: 2012Q3

REPORT INFORMATION
  Report Type: 
  Country: None (occurrence: None)
  Receive Date: 20120820
  Receipt Date: 20120815
  Transmission Date: 20120928
  Serious: Yes (Hospitalization)
  Sender: FDA-Public Use
  Company Number: US-GILEAD-2012-0058918

PATIENT
  Sex: Female

DRUGS (11)
  1. LETAIRIS [Suspect]
     Indication: PULMONARY HYPERTENSION
     Dosage: 10 MG, UNK
     Route: 048
     Dates: start: 20110919
  2. LETAIRIS [Suspect]
     Indication: CORONARY ARTERY DISEASE
  3. LETAIRIS [Suspect]
     Indication: SURGERY
  4. LETAIRIS [Suspect]
     Indication: DIASTOLIC DYSFUNCTION
  5. LETAIRIS [Suspect]
     Indication: ATRIAL FIBRILLATION
  6. LETAIRIS [Suspect]
     Indication: LUNG NEOPLASM MALIGNANT
  7. ATIVAN [Suspect]
  8. HYDROCODONE BITARTRATE [Suspect]
  9. LETAIRIS [Suspect]
     Indication: CHRONIC OBSTRUCTIVE PULMONARY DISEASE
  10. LETAIRIS [Suspect]
     Indication: CARDIAC FAILURE CONGESTIVE
  11. LETAIRIS [Suspect]

REACTIONS (2)
  - FALL [None]
  - HIP FRACTURE [None]
